FAERS Safety Report 5016390-5 (Version None)
Quarter: 2006Q2

REPORT INFORMATION
  Report Type: 
  Country: None (occurrence: None)
  Receive Date: 20060602
  Receipt Date: 20060522
  Transmission Date: 20061013
  Serious: Yes (Life-Threatening)
  Sender: FDA-Public Use
  Company Number: GB-JNJFOC-20060505055

PATIENT
  Sex: Male
  Weight: 78 kg

DRUGS (9)
  1. BLINDED; ABCIXIMA [Suspect]
     Indication: MYOCARDIAL INFARCTION
     Route: 042
  2. RETEPLASE [Suspect]
     Indication: MYOCARDIAL INFARCTION
     Route: 042
  3. PLACEBO [Suspect]
     Indication: MYOCARDIAL INFARCTION
     Route: 042
  4. ASPIRIN [Concomitant]
     Indication: ANTIPLATELET THERAPY
     Route: 048
  5. FUROSEMIDE [Concomitant]
     Indication: DIURETIC THERAPY
     Route: 042
  6. BISOPROLOL [Concomitant]
     Route: 048
  7. CLOPIDOGREL [Concomitant]
     Indication: ANTIPLATELET THERAPY
     Route: 048
  8. ATROVASTATIN [Concomitant]
     Route: 048
  9. LANSOPRAZOLE [Concomitant]
     Indication: DYSPEPSIA
     Route: 048

REACTIONS (2)
  - ARTERIAL INJURY [None]
  - PERICARDIAL EFFUSION [None]
